FAERS Safety Report 16884618 (Version 1)
Quarter: 2019Q4

REPORT INFORMATION
  Report Type: Spontaneous
  Country: ES (occurrence: ES)
  Receive Date: 20191004
  Receipt Date: 20191004
  Transmission Date: 20200122
  Serious: Yes (Other)
  Sender: FDA-Public Use
  Company Number: ES-MYLANLABS-2019M1091507

PATIENT
  Age: 81 Year
  Sex: Male

DRUGS (8)
  1. LEVOFLOXACIN. [Suspect]
     Active Substance: LEVOFLOXACIN
     Indication: RESPIRATORY TRACT INFECTION
     Dosage: UNK UNK, QD
     Route: 048
     Dates: start: 20190201, end: 20190201
  2. ZYLORIC [Concomitant]
     Active Substance: ALLOPURINOL
     Dosage: 300 MILLIGRAM, QD
     Route: 048
  3. EPREX [Concomitant]
     Active Substance: ERYTHROPOIETIN
     Indication: MYELODYSPLASTIC SYNDROME
     Dosage: 40000 INTERNATIONAL UNIT, QW
     Route: 058
  4. VIDAZA [Concomitant]
     Active Substance: AZACITIDINE
     Indication: MYELODYSPLASTIC SYNDROME
     Dosage: UNK
     Route: 058
  5. CLOPIDOGREL SANDOZ                 /01220701/ [Concomitant]
     Dosage: 75 MILLIGRAM, QD
     Route: 048
     Dates: start: 20190201
  6. DEXNON                             /00068002/ [Concomitant]
     Dosage: 200 MICROGRAM, QD
     Route: 048
  7. ATORVASTATINA NORMON [Concomitant]
     Dosage: 24 HOURS
     Route: 048
  8. SERC                               /00034201/ [Concomitant]
     Active Substance: THIORIDAZINE
     Dosage: 8 MICROGRAM, Q8H
     Route: 048

REACTIONS (4)
  - Rash [Recovered/Resolved]
  - Skin exfoliation [Recovered/Resolved]
  - Anaphylactic reaction [Recovered/Resolved]
  - Oedema peripheral [Recovered/Resolved]

NARRATIVE: CASE EVENT DATE: 20190201
